FAERS Safety Report 17061987 (Version 1)
Quarter: 2019Q4

REPORT INFORMATION
  Report Type: Spontaneous
  Country: IN (occurrence: IN)
  Receive Date: 20191121
  Receipt Date: 20191121
  Transmission Date: 20200122
  Serious: Yes (Other)
  Sender: FDA-Public Use
  Company Number: IN-LUPIN LIMITED-2019-04544

PATIENT
  Age: 60 Year

DRUGS (4)
  1. HUMINSULIN VIAL [Suspect]
     Active Substance: INSULIN HUMAN
     Dosage: UNK, HUMINSULIN VIAL 30/ 70
     Route: 065
  2. GLUCONORM (METFORMIN HYDROCHLORIDE) [Suspect]
     Active Substance: METFORMIN HYDROCHLORIDE
     Indication: DIABETES MELLITUS
     Dosage: 1 GRAM
     Route: 065
  3. HUMINSULIN VIAL [Suspect]
     Active Substance: INSULIN HUMAN
     Indication: DIABETES MELLITUS
     Dosage: UNK, IN THE MORNING 16 UNIT, HUMINSULIN VIAL 30/70
     Route: 065
  4. HUMINSULIN VIAL [Suspect]
     Active Substance: INSULIN HUMAN
     Dosage: UNK,IN THE NIGHT 10 UNIT, HUMINSULIN VIAL 30/70
     Route: 065

REACTIONS (2)
  - Hyperglycaemia [Unknown]
  - Abdominal pain upper [Unknown]
